FAERS Safety Report 22197683 (Version 1)
Quarter: 2023Q2

REPORT INFORMATION
  Report Type: Spontaneous
  Country: MT (occurrence: None)
  Receive Date: 20230411
  Receipt Date: 20230411
  Transmission Date: 20230721
  Serious: Yes (Other)
  Sender: FDA-Public Use
  Company Number: 2023A081771

PATIENT
  Age: 47 Year
  Sex: Male

DRUGS (3)
  1. OLAPARIB [Suspect]
     Active Substance: OLAPARIB
     Route: 048
  2. OLAPARIB [Suspect]
     Active Substance: OLAPARIB
     Dosage: REDUCED BY HALF FOR 4 WEEKS
     Route: 048
  3. DURVALUMAB [Concomitant]
     Active Substance: DURVALUMAB
     Indication: Biliary neoplasm
     Dosage: SIX CYCLES

REACTIONS (6)
  - Disease progression [Unknown]
  - Hypercholesterolaemia [Unknown]
  - Haemoglobin decreased [Unknown]
  - Haematocrit decreased [Unknown]
  - Red blood cell count decreased [Unknown]
  - Anaemia [Unknown]
